FAERS Safety Report 19637808 (Version 1)
Quarter: 2021Q3

REPORT INFORMATION
  Report Type: Spontaneous
  Country: CN (occurrence: CN)
  Receive Date: 20210730
  Receipt Date: 20210730
  Transmission Date: 20211014
  Serious: Yes (Hospitalization, Other)
  Sender: FDA-Public Use
  Company Number: CN-PFIZER INC-202100909937

PATIENT
  Age: 71 Year
  Sex: Female
  Weight: 42 kg

DRUGS (2)
  1. AMLODIPINE/ATORVASTATIN [Suspect]
     Active Substance: AMLODIPINE BESYLATE\ATORVASTATIN CALCIUM
     Indication: HYPERTENSION
     Dosage: 1 TABLET, 1X/DAY
     Route: 048
     Dates: start: 20210628, end: 20210629
  2. IRBESARTAN HYDROCHLOROTHIAZIDE [Suspect]
     Active Substance: HYDROCHLOROTHIAZIDE\IRBESARTAN
     Indication: HYPERTENSION
     Dosage: 162.5 MG, 1X/DAY
     Route: 048
     Dates: start: 20210628, end: 20210629

REACTIONS (3)
  - Hyperaldosteronism [Unknown]
  - Decreased appetite [Unknown]
  - Blood potassium decreased [Recovering/Resolving]

NARRATIVE: CASE EVENT DATE: 20210629
